FAERS Safety Report 6223473-0 (Version None)
Quarter: 2009Q2

REPORT INFORMATION
  Report Type: 
  Country: None (occurrence: None)
  Receive Date: 20090610
  Receipt Date: 20090529
  Transmission Date: 20091009
  Serious: Yes (Hospitalization)
  Sender: FDA-Public Use
  Company Number: 8047074

PATIENT
  Sex: Male
  Weight: 68.9 kg

DRUGS (18)
  1. KEPPRA [Suspect]
     Indication: CONVULSION
     Dosage: 1500 MG/D PO
     Route: 048
  2. LAMOTRIGINE [Concomitant]
  3. ZONISAMIDE [Concomitant]
  4. CLONAZEPAM [Concomitant]
  5. METOPROLOL SUCCINATE [Concomitant]
  6. AMLODIPINE [Concomitant]
  7. CLONIDINE [Concomitant]
  8. GLARGINE INSULIN [Concomitant]
  9. NOVOLOG [Concomitant]
  10. PERPHENAZINE [Concomitant]
  11. SINGULAIR [Concomitant]
  12. SEROQUEL [Concomitant]
  13. HYDROCORTISONE [Concomitant]
  14. NEXIUM [Concomitant]
  15. ALLEGRA [Concomitant]
  16. LIPITOR [Concomitant]
  17. DOCUSATE [Concomitant]
  18. LORAZEPAM [Concomitant]

REACTIONS (2)
  - CONVULSION [None]
  - PERITONEAL DIALYSIS [None]
